FAERS Safety Report 12804722 (Version 1)
Quarter: 2016Q4

REPORT INFORMATION
  Report Type: Spontaneous
  Country: CA (occurrence: CA)
  Receive Date: 20161003
  Receipt Date: 20161003
  Transmission Date: 20170207
  Serious: Yes (Other)
  Sender: FDA-Public Use
  Company Number: CA-ALLERGAN-1670341US

PATIENT
  Sex: Female
  Weight: 39.91 kg

DRUGS (11)
  1. DIDROCAL [Concomitant]
     Active Substance: CALCIUM CARBONATE\ETIDRONATE DISODIUM
     Indication: PRODUCT USED FOR UNKNOWN INDICATION
     Route: 065
  2. BOTOX [Suspect]
     Active Substance: ONABOTULINUMTOXINA
     Indication: PAIN
     Dosage: 800 UNITS, SINGLE
     Route: 030
  3. ESTROGEN [Concomitant]
     Active Substance: ESTRONE\SUS SCROFA OVARY
     Indication: PRODUCT USED FOR UNKNOWN INDICATION
     Route: 065
  4. ZYPREXA [Concomitant]
     Active Substance: OLANZAPINE
     Indication: PRODUCT USED FOR UNKNOWN INDICATION
     Route: 065
  5. SPIRIVA [Concomitant]
     Active Substance: TIOTROPIUM BROMIDE MONOHYDRATE
     Indication: PRODUCT USED FOR UNKNOWN INDICATION
     Route: 065
  6. VENTOLIN [Concomitant]
     Active Substance: ALBUTEROL SULFATE
     Indication: PRODUCT USED FOR UNKNOWN INDICATION
     Route: 065
  7. ALTACE [Concomitant]
     Active Substance: RAMIPRIL
     Indication: PRODUCT USED FOR UNKNOWN INDICATION
     Route: 065
  8. BACLOFEN. [Concomitant]
     Active Substance: BACLOFEN
     Indication: PRODUCT USED FOR UNKNOWN INDICATION
     Route: 065
  9. CRESTOR [Concomitant]
     Active Substance: ROSUVASTATIN CALCIUM
     Indication: PRODUCT USED FOR UNKNOWN INDICATION
     Route: 065
  10. FLOVENT [Concomitant]
     Active Substance: FLUTICASONE PROPIONATE
     Indication: PRODUCT USED FOR UNKNOWN INDICATION
     Route: 065
  11. LOSEC [Concomitant]
     Active Substance: OMEPRAZOLE
     Indication: PRODUCT USED FOR UNKNOWN INDICATION
     Route: 065

REACTIONS (45)
  - Confusional state [Unknown]
  - Disturbance in attention [Unknown]
  - Dry skin [Unknown]
  - Lip swelling [Unknown]
  - Paraesthesia [Unknown]
  - Cardiomyopathy [Unknown]
  - Overdose [Unknown]
  - Dysgeusia [Unknown]
  - Limb discomfort [Unknown]
  - Muscle spasms [Unknown]
  - Ageusia [Unknown]
  - Anosmia [Unknown]
  - Musculoskeletal pain [Unknown]
  - Hyperhidrosis [Unknown]
  - Dyspnoea [Unknown]
  - Pruritus [Unknown]
  - Nausea [Unknown]
  - Cholelithiasis [Unknown]
  - Genital burning sensation [Unknown]
  - Panic attack [Unknown]
  - Sensitivity of teeth [Unknown]
  - Weight decreased [Unknown]
  - Intestinal obstruction [Unknown]
  - Off label use [Unknown]
  - Hypophagia [Unknown]
  - Sinus tachycardia [Unknown]
  - Swelling face [Unknown]
  - Tremor [Unknown]
  - Decreased appetite [Unknown]
  - Drooling [Unknown]
  - Ill-defined disorder [Unknown]
  - Muscle tone disorder [Unknown]
  - Ventricular hypokinesia [Unknown]
  - Dysphagia [Unknown]
  - Drug screen positive [Unknown]
  - Injection related reaction [Unknown]
  - Neurological symptom [Unknown]
  - Peripheral swelling [Unknown]
  - Anxiety [Unknown]
  - Musculoskeletal stiffness [Unknown]
  - Depression [Unknown]
  - Disorientation [Unknown]
  - Memory impairment [Unknown]
  - Metamorphopsia [Unknown]
  - Urinary tract disorder [Unknown]
